FAERS Safety Report 8584745-8 (Version None)
Quarter: 2012Q3

REPORT INFORMATION
  Report Type: 
  Country: None (occurrence: None)
  Receive Date: 20120810
  Receipt Date: 20120731
  Transmission Date: 20120928
  Serious: Yes (Hospitalization)
  Sender: FDA-Public Use
  Company Number: US-BAYER-2012-079180

PATIENT
  Age: 40 Year
  Sex: Female
  Weight: 77 kg

DRUGS (8)
  1. ADALAT [Concomitant]
     Dosage: 400 MG, BID
  2. ETODOLAC [Concomitant]
     Dosage: 400 MG, UNK
     Route: 048
  3. RHINOCORT [Concomitant]
     Dosage: EVERY DAY
  4. YAZ [Suspect]
     Indication: MENOMETRORRHAGIA
  5. MULTIVITAMINS WITH MINERALS [MULTIVITAMINS WITH MINERALS] [Concomitant]
     Dosage: EVERY DAY
  6. ASTELIN [Concomitant]
     Dosage: 2 SPRAYS, BID
     Route: 045
  7. NASAL PREPARATIONS [Concomitant]
  8. AKTIL [AMOXICILLIN TRIHYDRATE,CLAVULANATE POTASSIUM] [Concomitant]
     Dosage: 875 MG, BID
     Route: 048

REACTIONS (3)
  - THROMBOPHLEBITIS [None]
  - PELVIC VENOUS THROMBOSIS [None]
  - DEEP VEIN THROMBOSIS [None]
